FAERS Safety Report 9832431 (Version 1)
Quarter: 2014Q1

REPORT INFORMATION
  Report Type: Spontaneous
  Country: US (occurrence: US)
  Receive Date: 20140121
  Receipt Date: 20140121
  Transmission Date: 20141002
  Serious: No
  Sender: FDA-Public Use
  Company Number: US-GILEAD-2014-0092632

PATIENT
  Age: 72 Year
  Sex: Female

DRUGS (7)
  1. LETAIRIS [Suspect]
     Indication: SYSTEMIC SCLEROSIS
     Dosage: 5 MG, QD
     Route: 048
     Dates: start: 20130118
  2. ERYTHROMYCIN [Concomitant]
  3. ALLEGRA [Concomitant]
  4. ZANTAC [Concomitant]
  5. HYDROCHLOROTHIAZIDE [Concomitant]
  6. ENALAPRIL [Concomitant]
  7. OMEPRAZOLE [Concomitant]

REACTIONS (2)
  - Hyperaesthesia [Unknown]
  - Rash [Not Recovered/Not Resolved]
